FAERS Safety Report 8386543-7 (Version None)
Quarter: 2012Q2

REPORT INFORMATION
  Report Type: 
  Country: None (occurrence: None)
  Receive Date: 20120525
  Receipt Date: 20110617
  Transmission Date: 20120825
  Serious: No
  Sender: FDA-Public Use
  Company Number: US-GLAXOSMITHKLINE-A0931876A

PATIENT
  Age: 40 Year
  Sex: Male

DRUGS (2)
  1. ALLERGY MEDICINE (UNSPECIFIED) [Concomitant]
  2. VERAMYST [Suspect]
     Indication: HYPERSENSITIVITY
     Dosage: 2SPR PER DAY
     Route: 045

REACTIONS (2)
  - EPISTAXIS [None]
  - NASAL DRYNESS [None]
